FAERS Safety Report 23139479 (Version 1)
Quarter: 2023Q4

REPORT INFORMATION
  Report Type: Spontaneous
  Country: JP (occurrence: JP)
  Receive Date: 20231102
  Receipt Date: 20231102
  Transmission Date: 20240109
  Serious: Yes (Hospitalization)
  Sender: FDA-Public Use
  Company Number: JP-ELI_LILLY_AND_COMPANY-JP202309005148

PATIENT
  Sex: Female

DRUGS (4)
  1. MOUNJARO [Suspect]
     Active Substance: TIRZEPATIDE
     Indication: Product used for unknown indication
     Dosage: UNK
     Route: 058
  2. AMLODIPINE\TELMISARTAN [Concomitant]
     Active Substance: AMLODIPINE\TELMISARTAN
  3. SENNA LEAF [Concomitant]
     Active Substance: SENNA LEAF
  4. ELDECALCITOL [Concomitant]
     Active Substance: ELDECALCITOL

REACTIONS (3)
  - Dizziness [Unknown]
  - Oedema peripheral [Unknown]
  - Fracture [Unknown]
